FAERS Safety Report 17292443 (Version 1)
Quarter: 2020Q1

REPORT INFORMATION
  Report Type: Spontaneous
  Country: IT (occurrence: IT)
  Receive Date: 20200121
  Receipt Date: 20200121
  Transmission Date: 20200409
  Serious: Yes (Other)
  Sender: FDA-Public Use
  Company Number: IT-BAYER-2019-231668

PATIENT
  Age: 50 Year
  Sex: Female

DRUGS (7)
  1. ULTRAVIST [Suspect]
     Active Substance: IOPROMIDE
     Indication: COMPUTERISED TOMOGRAM THORAX
     Dosage: 1 DF, ONCE
     Dates: start: 20180730, end: 20180730
  2. TRIATEC [RAMIPRIL] [Concomitant]
     Active Substance: RAMIPRIL
     Dosage: 10 MG
  3. PARIET [Concomitant]
     Active Substance: RABEPRAZOLE SODIUM
  4. DENOSUMAB [Concomitant]
     Active Substance: DENOSUMAB
  5. DIBASE [Concomitant]
     Active Substance: CHOLECALCIFEROL
  6. NEBIVOLOL HYDROCHLORIDE [Concomitant]
     Active Substance: NEBIVOLOL HYDROCHLORIDE
     Dosage: 5 MG
  7. EFEXOR [Concomitant]
     Active Substance: VENLAFAXINE HYDROCHLORIDE

REACTIONS (3)
  - Injection site erythema [Recovering/Resolving]
  - Contrast media reaction [Recovering/Resolving]
  - Pruritus [Recovering/Resolving]

NARRATIVE: CASE EVENT DATE: 20180730
